FAERS Safety Report 22120285 (Version 1)
Quarter: 2023Q1

REPORT INFORMATION
  Report Type: Spontaneous
  Country: US (occurrence: None)
  Receive Date: 20230320
  Receipt Date: 20230320
  Transmission Date: 20230418
  Serious: No
  Sender: FDA-Public Use
  Company Number: None

PATIENT
  Age: 74 Year
  Sex: Male

DRUGS (1)
  1. RILUZOLE [Suspect]
     Active Substance: RILUZOLE
     Dosage: 1 TABLET BID ORAL?
     Route: 048
     Dates: start: 20220622, end: 20221223

REACTIONS (2)
  - COVID-19 [None]
  - Therapy cessation [None]

NARRATIVE: CASE EVENT DATE: 20221223
